FAERS Safety Report 5716092-3 (Version None)
Quarter: 2008Q2

REPORT INFORMATION
  Report Type: 
  Country: None (occurrence: None)
  Receive Date: 20080424
  Receipt Date: 20080416
  Transmission Date: 20081010
  Serious: Yes (Hospitalization)
  Sender: FDA-Public Use
  Company Number: US-ASTRAZENECA-2008UW07844

PATIENT
  Age: 24 Year
  Sex: Male

DRUGS (4)
  1. SEROQUEL [Suspect]
     Dosage: FOR APPROXIMATELY ONE YEAR
     Route: 048
  2. RISPERDAL [Concomitant]
     Dosage: 6 TO 9 MG
  3. DEPAKOTE [Concomitant]
  4. CLOZARIL [Concomitant]
     Dosage: FOR 2 TO 3 YEARS

REACTIONS (1)
  - KETOACIDOSIS [None]
